FAERS Safety Report 18402783 (Version 1)
Quarter: 2020Q4

REPORT INFORMATION
  Report Type: Spontaneous
  Country: DE (occurrence: DE)
  Receive Date: 20201019
  Receipt Date: 20201019
  Transmission Date: 20210114
  Serious: Yes (Death)
  Sender: FDA-Public Use
  Company Number: DE-009507513-2010DEU005495

PATIENT
  Age: 62 Year
  Sex: Male
  Weight: 80 kg

DRUGS (1)
  1. PEMBROLIZUMAB. [Suspect]
     Active Substance: PEMBROLIZUMAB
     Indication: RENAL CELL CARCINOMA
     Dosage: 200 MILLIGRAM
     Route: 042
     Dates: start: 202004, end: 202006

REACTIONS (1)
  - Drug-induced liver injury [Fatal]

NARRATIVE: CASE EVENT DATE: 202004
